FAERS Safety Report 9921920 (Version 1)
Quarter: 2014Q1

REPORT INFORMATION
  Report Type: Spontaneous
  Country: US (occurrence: None)
  Receive Date: 20140221
  Receipt Date: 20140221
  Transmission Date: 20141002
  Serious: Yes (Other)
  Sender: FDA-Public Use
  Company Number: None

PATIENT
  Age: 43 Year
  Sex: Female

DRUGS (2)
  1. ESCITALOPRAM [Suspect]
     Indication: DEPRESSION
     Dosage: 1 TAB ONCE DAILY
     Route: 048
  2. ESCITALOPRAM [Suspect]
     Indication: ANXIETY
     Dosage: 1 TAB ONCE DAILY
     Route: 048

REACTIONS (3)
  - Anxiety [None]
  - Irritability [None]
  - Product substitution issue [None]
